FAERS Safety Report 25064271 (Version 1)
Quarter: 2025Q1

REPORT INFORMATION
  Report Type: Report from Study
  Country: US (occurrence: US)
  Receive Date: 20250311
  Receipt Date: 20250311
  Transmission Date: 20250409
  Serious: Yes (Hospitalization)
  Sender: BLUEBIRD BIO
  Company Number: US-BLUEBIRD BIO-US-BBB-24-00081

PATIENT
  Age: 10 Year
  Sex: Female
  Weight: 42.7 kg

DRUGS (11)
  1. ZYNTEGLO [Suspect]
     Active Substance: BETIBEGLOGENE AUTOTEMCEL
     Indication: Thalassaemia beta
     Route: 042
     Dates: start: 20230425, end: 20230425
  2. BUSULFAN [Concomitant]
     Active Substance: BUSULFAN
     Indication: Bone marrow conditioning regimen
     Dosage: 3.2 MILLIGRAM/KILOGRAM, QD
     Route: 042
     Dates: start: 20230419, end: 20230422
  3. MOZOBIL [Concomitant]
     Active Substance: PLERIXAFOR
     Indication: Haematopoietic stem cell mobilisation
     Dosage: UNK, QD
  4. FILGRASTIM [Concomitant]
     Active Substance: FILGRASTIM
     Indication: Haematopoietic stem cell mobilisation
     Dosage: 300 MICROGRAM, QD
     Dates: start: 20221202, end: 20221205
  5. PLATELETS [Concomitant]
     Active Substance: HUMAN PLATELET, ALLOGENIC
     Indication: Product used for unknown indication
     Route: 042
     Dates: start: 20230504
  6. PLATELETS [Concomitant]
     Active Substance: HUMAN PLATELET, ALLOGENIC
     Route: 042
     Dates: start: 20230505
  7. PLATELETS [Concomitant]
     Active Substance: HUMAN PLATELET, ALLOGENIC
     Route: 042
     Dates: start: 20230508
  8. PLATELETS [Concomitant]
     Active Substance: HUMAN PLATELET, ALLOGENIC
     Route: 042
     Dates: start: 20230510
  9. PLATELETS [Concomitant]
     Active Substance: HUMAN PLATELET, ALLOGENIC
     Route: 042
     Dates: start: 20230513
  10. PLATELETS [Concomitant]
     Active Substance: HUMAN PLATELET, ALLOGENIC
     Route: 042
     Dates: start: 20230517
  11. PLATELETS [Concomitant]
     Active Substance: HUMAN PLATELET, ALLOGENIC
     Route: 042
     Dates: start: 20230519

REACTIONS (1)
  - COVID-19 [Recovered/Resolved]

NARRATIVE: CASE EVENT DATE: 20231002
